FAERS Safety Report 6114423-6 (Version None)
Quarter: 2009Q1

REPORT INFORMATION
  Report Type: 
  Country: None (occurrence: None)
  Receive Date: 20090313
  Receipt Date: 20090306
  Transmission Date: 20090719
  Serious: Yes (Hospitalization)
  Sender: FDA-Public Use
  Company Number: US-ELI_LILLY_AND_COMPANY-US200903002397

PATIENT
  Age: 48 Year
  Sex: Female

DRUGS (6)
  1. BYETTA [Suspect]
     Indication: TYPE 2 DIABETES MELLITUS
     Dosage: 5 UG, UNKNOWN
     Dates: start: 20081201, end: 20090123
  2. METFORMIN HCL [Concomitant]
     Dosage: 1000 MG, 2/D
  3. LYRICA [Concomitant]
     Dosage: 75 MG, DAILY (1/D)
  4. CRESTOR [Concomitant]
     Dosage: 10 MG, UNK
     Dates: start: 20081124
  5. LISINOPRIL [Concomitant]
     Dosage: 10 MG, UNK
  6. INSULIN [Concomitant]
     Dosage: 50 U, 2/D

REACTIONS (4)
  - ABDOMINAL PAIN [None]
  - HEPATIC STEATOSIS [None]
  - PANCREATITIS [None]
  - WEIGHT DECREASED [None]
